FAERS Safety Report 11794493 (Version 1)
Quarter: 2015Q4

REPORT INFORMATION
  Report Type: Spontaneous
  Country: US (occurrence: US)
  Receive Date: 20151202
  Receipt Date: 20151202
  Transmission Date: 20160305
  Serious: No
  Sender: FDA-Public Use
  Company Number: US-BAYER-2015-480745

PATIENT
  Sex: Female

DRUGS (1)
  1. CLARITIN [Suspect]
     Active Substance: LORATADINE
     Indication: RASH

REACTIONS (2)
  - Pruritus [Not Recovered/Not Resolved]
  - Product use issue [None]
